FAERS Safety Report 13375181 (Version 11)
Quarter: 2018Q2

REPORT INFORMATION
  Report Type: Spontaneous
  Country: US (occurrence: US)
  Receive Date: 20170327
  Receipt Date: 20180423
  Transmission Date: 20180711
  Serious: Yes (Hospitalization, Other)
  Sender: FDA-Public Use
  Company Number: US-CLOVIS ONCOLOGY-CLO-2017-000123

PATIENT
  Age: 78 Year
  Sex: Female
  Weight: 54.9 kg

DRUGS (23)
  1. RUBRACA [Suspect]
     Active Substance: RUCAPARIB CAMSYLATE
     Dosage: 500 MG, BID
     Route: 048
     Dates: start: 20170421, end: 201708
  2. RUBRACA [Suspect]
     Active Substance: RUCAPARIB CAMSYLATE
     Dosage: 500 MG, BID
     Route: 048
     Dates: start: 20170523
  3. LIPITOR [Concomitant]
     Active Substance: ATORVASTATIN CALCIUM
     Indication: PRODUCT USED FOR UNKNOWN INDICATION
     Dosage: 10 MG, QD
  4. PARACETAMOL [Concomitant]
     Active Substance: ACETAMINOPHEN
     Indication: PRODUCT USED FOR UNKNOWN INDICATION
     Dosage: 325 MG, PRN
     Route: 048
  5. PRILOSEC [Concomitant]
     Active Substance: OMEPRAZOLE MAGNESIUM
     Indication: PRODUCT USED FOR UNKNOWN INDICATION
     Dosage: 10 MG, QD
     Route: 048
  6. CITRACAL + D [Concomitant]
     Active Substance: CALCIUM CITRATE\VITAMIN D
     Indication: PRODUCT USED FOR UNKNOWN INDICATION
     Dosage: 1 DF, QD
     Route: 048
  7. GLUTAMINE [Concomitant]
     Active Substance: GLUTAMINE
     Indication: PRODUCT USED FOR UNKNOWN INDICATION
     Dosage: 1000 MG, BID
     Route: 048
  8. ATIVAN [Concomitant]
     Active Substance: LORAZEPAM
     Indication: ANXIETY
     Dosage: 0.5 MG, PRN
     Route: 048
  9. OMEGA 3 [Concomitant]
     Active Substance: OMEGA-3 FATTY ACIDS
     Indication: PRODUCT USED FOR UNKNOWN INDICATION
     Dosage: 1200 MG, QD
     Route: 048
  10. CRANBERRY. [Concomitant]
     Active Substance: CRANBERRY
     Indication: PRODUCT USED FOR UNKNOWN INDICATION
     Dosage: 500 MG, QD
     Route: 048
  11. RUBRACA [Suspect]
     Active Substance: RUCAPARIB CAMSYLATE
     Dosage: 400 MG, BID
     Route: 048
     Dates: start: 201708, end: 20170925
  12. PYRIDOXINE HYDROCHLORIDE. [Concomitant]
     Active Substance: PYRIDOXINE HYDROCHLORIDE
     Indication: PRODUCT USED FOR UNKNOWN INDICATION
     Dosage: 50 MG, QD
     Route: 048
  13. MAGNESIUM [Concomitant]
     Active Substance: MAGNESIUM
     Indication: PRODUCT USED FOR UNKNOWN INDICATION
     Dosage: 400 MG, BID
     Route: 048
  14. RUBRACA [Suspect]
     Active Substance: RUCAPARIB CAMSYLATE
     Indication: OVARIAN CANCER
     Dosage: 600 MG, BID
     Route: 048
     Dates: start: 20170213, end: 20170417
  15. RUBRACA [Suspect]
     Active Substance: RUCAPARIB CAMSYLATE
     Dosage: 300 MG, BID
     Route: 048
     Dates: start: 20180321
  16. ZOFRAN [Concomitant]
     Active Substance: ONDANSETRON HYDROCHLORIDE
     Indication: VOMITING
  17. VITAMIN B COMPLEX [Concomitant]
     Active Substance: CYANOCOBALAMIN\DEXPANTHENOL\NIACINAMIDE\PYRIDOXINE HYDROCHLORIDE\RIBOFLAVIN 5^-PHOSPHATE SODIUM\THIAMINE HYDROCHLORIDE\VITAMIN B COMPLEX
     Indication: PRODUCT USED FOR UNKNOWN INDICATION
     Dosage: 100 MG, QD
  18. RUBRACA [Suspect]
     Active Substance: RUCAPARIB CAMSYLATE
     Dosage: 400 MG, BID
     Route: 048
     Dates: start: 201708, end: 20170925
  19. RUBRACA [Suspect]
     Active Substance: RUCAPARIB CAMSYLATE
     Dosage: 600 MG, BID
     Route: 048
     Dates: start: 20170228, end: 20170420
  20. RUBRACA [Suspect]
     Active Substance: RUCAPARIB CAMSYLATE
     Dosage: 500 MG, BID
     Route: 048
     Dates: start: 20170419, end: 20170515
  21. ZOFRAN [Concomitant]
     Active Substance: ONDANSETRON HYDROCHLORIDE
     Indication: NAUSEA
     Dosage: 4 MG, PRN
     Route: 048
  22. RUBRACA [Suspect]
     Active Substance: RUCAPARIB CAMSYLATE
     Dosage: 300 MG, BID
     Route: 048
     Dates: start: 20170926, end: 201709
  23. POTASSIUM CHLORIDE. [Concomitant]
     Active Substance: POTASSIUM CHLORIDE
     Indication: PRODUCT USED FOR UNKNOWN INDICATION
     Dosage: 10 MEQ, QD
     Route: 048

REACTIONS (27)
  - Small intestinal obstruction [Recovered/Resolved]
  - Renal function test abnormal [Unknown]
  - Blood potassium decreased [Unknown]
  - Peripheral swelling [Unknown]
  - Adverse event [Unknown]
  - Stent placement [Unknown]
  - Electrolyte substitution therapy [Unknown]
  - Nausea [Recovering/Resolving]
  - Underdose [Unknown]
  - Adverse event [Unknown]
  - Blood magnesium decreased [Unknown]
  - Dyspnoea [Unknown]
  - Fatigue [Unknown]
  - Vomiting [Unknown]
  - Blood magnesium abnormal [Unknown]
  - Malnutrition [Unknown]
  - Liver function test abnormal [Unknown]
  - Drug dose omission [Unknown]
  - Small intestinal obstruction [Unknown]
  - Hernia [Unknown]
  - Diarrhoea [Recovered/Resolved]
  - Transfusion [Unknown]
  - Adverse event [Unknown]
  - Gastric disorder [Unknown]
  - Malaise [Unknown]
  - Weight decreased [Recovering/Resolving]
  - Red blood cell count decreased [Unknown]

NARRATIVE: CASE EVENT DATE: 2017
